FAERS Safety Report 24657260 (Version 1)
Quarter: 2024Q4

REPORT INFORMATION
  Report Type: Spontaneous
  Country: US (occurrence: US)
  Receive Date: 20241125
  Receipt Date: 20241125
  Transmission Date: 20250115
  Serious: No
  Sender: TARO
  Company Number: US-TARO PHARMACEUTICALS USA INC.-2024TAR00447

PATIENT

DRUGS (1)
  1. TRIAMCINOLONE ACETONIDE [Suspect]
     Active Substance: TRIAMCINOLONE ACETONIDE
     Indication: Eczema
     Dosage: UNK
     Route: 061

REACTIONS (2)
  - Eczema [Not Recovered/Not Resolved]
  - Application site exfoliation [Not Recovered/Not Resolved]
